FAERS Safety Report 16446427 (Version 1)
Quarter: 2019Q2

REPORT INFORMATION
  Report Type: Spontaneous
  Country: US (occurrence: US)
  Receive Date: 20190508
  Receipt Date: 20190508
  Transmission Date: 20190711
  Serious: No
  Sender: FDA-Public Use
  Company Number: None

PATIENT
  Age: 38 Year
  Sex: Female
  Weight: 85.28 kg

DRUGS (1)
  1. SUBOXONE [Suspect]
     Active Substance: BUPRENORPHINE HYDROCHLORIDE\NALOXONE HYDROCHLORIDE
     Dosage: 8/2 SL
     Route: 060
     Dates: start: 20190425, end: 20190425

REACTIONS (2)
  - Drug hypersensitivity [None]
  - Hypersensitivity [None]

NARRATIVE: CASE EVENT DATE: 20190425
